FAERS Safety Report 12249873 (Version 3)
Quarter: 2016Q3

REPORT INFORMATION
  Report Type: Spontaneous
  Country: US (occurrence: US)
  Receive Date: 20160408
  Receipt Date: 20160715
  Transmission Date: 20161109
  Serious: Yes (Other)
  Sender: FDA-Public Use
  Company Number: US-JNJFOC-20160405992

PATIENT
  Sex: Female
  Weight: 85.28 kg

DRUGS (82)
  1. LUTEIN [Concomitant]
     Active Substance: LUTEIN
     Route: 048
  2. TRAZODONE HYDROCHLORIDE. [Concomitant]
     Active Substance: TRAZODONE HYDROCHLORIDE
     Indication: RHEUMATOID ARTHRITIS
     Dosage: FOR 30 DAYS.
     Route: 048
     Dates: start: 20151214
  3. IRON [Concomitant]
     Active Substance: IRON
     Indication: MICROCYTIC ANAEMIA
     Dosage: 1-2 TIMES DAILY FOR 90 DAYS.
     Route: 048
     Dates: start: 20140923
  4. CALCIUM PLUS VITAMIN D [Concomitant]
     Active Substance: CALCIUM\VITAMIN D
     Dosage: 600-200MG UNIT TABLET 1 ORAL DAILY
     Route: 048
  5. LEVOTHROID [Concomitant]
     Active Substance: LEVOTHYROXINE SODIUM
     Indication: HYPOTHYROIDISM
     Dosage: FOR 30 DAYS
     Route: 065
     Dates: start: 20130731
  6. PRILOSEC [Concomitant]
     Active Substance: OMEPRAZOLE MAGNESIUM
     Indication: SPONDYLOARTHROPATHY
     Dosage: FOR 30 DAYS
     Route: 065
     Dates: start: 20100923
  7. PROAIR HFA [Concomitant]
     Active Substance: ALBUTEROL SULFATE
     Indication: BRONCHITIS
     Dosage: 1 AEROSOL SOLN 2-3 TIMES PER DAY
     Route: 065
     Dates: start: 20121003
  8. VICODIN [Concomitant]
     Active Substance: ACETAMINOPHEN\HYDROCODONE BITARTRATE
     Indication: FIBROMYALGIA
     Route: 065
     Dates: start: 20130116
  9. REMICADE [Suspect]
     Active Substance: INFLIXIMAB
     Indication: RHEUMATOID ARTHRITIS
     Route: 042
     Dates: start: 2009
  10. ENALAPRIL W/HYDROCHLOROTHIAZIDE [Concomitant]
     Active Substance: ENALAPRIL\HYDROCHLOROTHIAZIDE
     Indication: HYPERTENSION
     Dosage: 10-25 MG, FOR 90 DAYS.
     Route: 048
     Dates: start: 20160428
  11. TRAZODONE HYDROCHLORIDE. [Concomitant]
     Active Substance: TRAZODONE HYDROCHLORIDE
     Indication: INSOMNIA
     Route: 048
     Dates: start: 20120403
  12. PROTONIX [Concomitant]
     Active Substance: PANTOPRAZOLE SODIUM
     Indication: GASTROOESOPHAGEAL REFLUX DISEASE
     Dosage: PACKETS FOR 90 DAYS
     Route: 048
     Dates: start: 20150701
  13. METHOTREXATE. [Concomitant]
     Active Substance: METHOTREXATE
     Indication: SPONDYLOARTHROPATHY
     Dosage: FOR 90 DAYS
     Route: 048
     Dates: start: 20151214
  14. LISINOPRIL. [Concomitant]
     Active Substance: LISINOPRIL
     Route: 048
  15. NASONEX [Concomitant]
     Active Substance: MOMETASONE FUROATE
     Route: 045
  16. PRILOSEC [Concomitant]
     Active Substance: OMEPRAZOLE MAGNESIUM
     Indication: RHEUMATOID ARTHRITIS
     Dosage: FOR 30 DAYS
     Route: 065
     Dates: start: 20111020
  17. VITAMIN D [Concomitant]
     Active Substance: CHOLECALCIFEROL
     Dosage: 50000 UNIT FOR 30 DAYS
     Route: 048
     Dates: start: 20100414
  18. METHYLPREDNISOLONE ACETATE. [Concomitant]
     Active Substance: METHYLPREDNISOLONE ACETATE
     Route: 065
     Dates: start: 20150217
  19. REMICADE [Suspect]
     Active Substance: INFLIXIMAB
     Indication: RHEUMATOID ARTHRITIS
     Route: 042
     Dates: start: 20151212
  20. PREDNISONE. [Concomitant]
     Active Substance: PREDNISONE
     Dosage: 1-2 TABLET IN THE MORNING AS DIRECTED FOR 30 DAYS.
     Route: 048
     Dates: start: 20160404
  21. TRAZODONE HYDROCHLORIDE. [Concomitant]
     Active Substance: TRAZODONE HYDROCHLORIDE
     Indication: INSOMNIA
     Dosage: FOR 30 DAYS.
     Route: 048
     Dates: start: 20151214
  22. LEVOTHYROXINE SODIUM. [Concomitant]
     Active Substance: LEVOTHYROXINE SODIUM
     Indication: HYPOTHYROIDISM
     Dosage: FOR 90 DAYS
     Route: 048
     Dates: start: 20150701
  23. ACYCLOVIR. [Concomitant]
     Active Substance: ACYCLOVIR
     Indication: HERPES ZOSTER
     Route: 065
     Dates: start: 20110808
  24. DOXYCYCLINE HYCLATE. [Concomitant]
     Active Substance: DOXYCYCLINE HYCLATE
     Dosage: FOR 10 DAYS
     Route: 065
     Dates: start: 20110201
  25. FLONASE [Concomitant]
     Active Substance: FLUTICASONE PROPIONATE
     Indication: BRONCHITIS
     Dosage: FOR 30 DAYS
     Route: 065
     Dates: start: 20121003
  26. NEURONTIN [Concomitant]
     Active Substance: GABAPENTIN
     Indication: FIBROMYALGIA
     Dosage: FOR 30 DAYS
     Route: 048
     Dates: start: 20130605
  27. NEURONTIN [Concomitant]
     Active Substance: GABAPENTIN
     Indication: FIBROMYALGIA
     Dosage: FOR 90 DAYS
     Route: 048
     Dates: start: 20150701
  28. VAGIFEM [Concomitant]
     Active Substance: ESTRADIOL
     Route: 067
     Dates: start: 20050420
  29. VITAMIN D [Concomitant]
     Active Substance: CHOLECALCIFEROL
     Dosage: 2000 UNIT
     Route: 048
     Dates: start: 20090129
  30. VITAMIN B12 [Concomitant]
     Active Substance: CYANOCOBALAMIN
     Route: 048
     Dates: start: 20090330
  31. FISH OIL [Concomitant]
     Active Substance: FISH OIL
     Route: 048
  32. TRAZODONE HYDROCHLORIDE. [Concomitant]
     Active Substance: TRAZODONE HYDROCHLORIDE
     Indication: RHEUMATOID ARTHRITIS
     Route: 048
     Dates: start: 20120403
  33. HYDROXYCHLOROQUINE SULFATE. [Concomitant]
     Active Substance: HYDROXYCHLOROQUINE SULFATE
     Indication: RHEUMATOID ARTHRITIS
     Dosage: FOR 90 DAYS.
     Route: 048
     Dates: start: 20160208
  34. AZELASTINE HCL [Concomitant]
     Active Substance: AZELASTINE HYDROCHLORIDE
     Dosage: 2 SPRAYS EACH SIDE IN THE AM
     Route: 065
  35. CIPROFLOXACIN HCL [Concomitant]
     Active Substance: CIPROFLOXACIN HYDROCHLORIDE
     Indication: URINARY TRACT INFECTION
     Route: 065
     Dates: start: 20090330
  36. SINGULAIR [Concomitant]
     Active Substance: MONTELUKAST SODIUM
     Route: 048
  37. VITAMIN E [Concomitant]
     Active Substance: .ALPHA.-TOCOPHEROL
     Dosage: 400 UNIT
     Route: 048
     Dates: start: 20081211
  38. TIZANIDINE HCL [Concomitant]
     Active Substance: TIZANIDINE HYDROCHLORIDE
     Indication: INSOMNIA
     Dosage: 1-2, 1-2 HOURS BEFORE HS AS DIRECTED FOR 90 DAYS
     Route: 048
     Dates: start: 20160208
  39. AMBIEN [Concomitant]
     Active Substance: ZOLPIDEM TARTRATE
     Dosage: FOR 30 DAYS
     Route: 048
     Dates: start: 20150217
  40. ACETAMINOPHEN\HYDROCODONE BITARTRATE [Concomitant]
     Active Substance: ACETAMINOPHEN\HYDROCODONE BITARTRATE
     Indication: RHEUMATOID ARTHRITIS
     Dosage: FOR 30 DAYS
     Route: 065
     Dates: start: 20130605
  41. LORATADINE. [Concomitant]
     Active Substance: LORATADINE
     Route: 048
  42. LYRICA [Concomitant]
     Active Substance: PREGABALIN
     Indication: NECK PAIN
     Dosage: FOR 30 DAYS
     Route: 065
     Dates: start: 20090903
  43. METAXALONE. [Concomitant]
     Active Substance: METAXALONE
     Indication: FIBROMYALGIA
     Dosage: FOR 30 DAYS
     Route: 065
     Dates: start: 20131205
  44. NEURONTIN [Concomitant]
     Active Substance: GABAPENTIN
     Indication: FIBROMYALGIA
     Dosage: FOR 90 DAYS
     Route: 048
     Dates: start: 20150701
  45. ULTRAM [Concomitant]
     Active Substance: TRAMADOL HYDROCHLORIDE
     Dosage: FOR 30 DAYS
     Dates: start: 20110829
  46. AMBIEN [Concomitant]
     Active Substance: ZOLPIDEM TARTRATE
     Dosage: FOR 30 DAYS
     Route: 048
     Dates: start: 20160331
  47. METHOTREXATE. [Concomitant]
     Active Substance: METHOTREXATE
     Indication: SPONDYLOARTHROPATHY
     Dosage: FOR 90 DAYS
     Route: 048
     Dates: start: 20090917
  48. AZITHROMYCIN ANHYDROUS. [Concomitant]
     Active Substance: AZITHROMYCIN ANHYDROUS
     Indication: ACUTE SINUSITIS
     Route: 065
  49. BENADRYL [Concomitant]
     Active Substance: DIPHENHYDRAMINE HYDROCHLORIDE
     Route: 048
  50. FLEXERIL [Concomitant]
     Active Substance: CYCLOBENZAPRINE HYDROCHLORIDE
     Indication: INSOMNIA
     Dosage: FOR 30 DAYS
     Route: 065
     Dates: start: 20121212
  51. LIDOCAINE. [Concomitant]
     Active Substance: LIDOCAINE
     Indication: RHEUMATOID ARTHRITIS
     Dosage: FOR 30 DAYS
     Route: 065
     Dates: start: 20111212
  52. MOBIC [Concomitant]
     Active Substance: MELOXICAM
     Indication: RHEUMATOID ARTHRITIS
     Dosage: FOR 90 DAYS
     Route: 065
     Dates: start: 20140923
  53. VITAMIN D [Concomitant]
     Active Substance: CHOLECALCIFEROL
     Dosage: 1000 UNIT FOR 30 DAYS
     Route: 048
     Dates: start: 20090813
  54. METHYLPREDNISOLONE ACETATE. [Concomitant]
     Active Substance: METHYLPREDNISOLONE ACETATE
     Route: 065
     Dates: start: 20160330
  55. REMICADE [Suspect]
     Active Substance: INFLIXIMAB
     Indication: RHEUMATOID ARTHRITIS
     Route: 042
     Dates: start: 20160218, end: 201604
  56. FOLIC ACID. [Concomitant]
     Active Substance: FOLIC ACID
     Indication: RHEUMATOID ARTHRITIS
     Dosage: FOR 90 DAYS.
     Route: 048
     Dates: start: 20160428
  57. FOLIC ACID. [Concomitant]
     Active Substance: FOLIC ACID
     Indication: RHEUMATOID ARTHRITIS
     Route: 048
     Dates: start: 20150701
  58. VITAMIN B12 [Concomitant]
     Active Substance: CYANOCOBALAMIN
     Route: 048
  59. DHEA [Concomitant]
     Active Substance: PRASTERONE
     Route: 048
  60. MAGNESIUM GLUCONATE [Concomitant]
     Active Substance: MAGNESIUM GLUCONATE
     Route: 048
  61. METHOTREXATE. [Concomitant]
     Active Substance: METHOTREXATE
     Indication: RHEUMATOID ARTHRITIS
     Dosage: FOR 90 DAYS
     Route: 048
     Dates: start: 20090917
  62. ESTRADERM [Concomitant]
     Active Substance: ESTRADIOL
     Route: 062
  63. LEVAQUIN [Concomitant]
     Active Substance: LEVOFLOXACIN
     Indication: BRONCHITIS
     Dosage: FOR 5 DAYS
     Route: 065
     Dates: start: 20121003
  64. LIDODERM [Concomitant]
     Active Substance: LIDOCAINE
     Indication: POST HERPETIC NEURALGIA
     Dosage: FOR 30 DAYS 1-3 PATCH TWELVE HOURS ON TWELVE HOURS OFF
     Route: 065
     Dates: start: 20120207
  65. LORATADINE. [Concomitant]
     Active Substance: LORATADINE
     Route: 048
  66. METAXALONE. [Concomitant]
     Active Substance: METAXALONE
     Indication: FIBROMYALGIA
     Dosage: FOR 30 DAYS
     Route: 065
     Dates: start: 20131205
  67. NEURONTIN [Concomitant]
     Active Substance: GABAPENTIN
     Indication: FIBROMYALGIA
     Route: 048
     Dates: start: 20100816, end: 20101206
  68. NEURONTIN [Concomitant]
     Active Substance: GABAPENTIN
     Indication: FIBROMYALGIA
     Dosage: FOR 30 DAYS
     Route: 048
     Dates: start: 20130605
  69. SULFAMETHOXAZOLE AND TRIMETHOPRIM DOUBLE STRENGTH [Concomitant]
     Active Substance: SULFAMETHOXAZOLE\TRIMETHOPRIM
     Indication: DYSURIA
     Dosage: FOR 10 DAYS 800-160MG
     Route: 065
     Dates: start: 20160208
  70. VICODIN [Concomitant]
     Active Substance: ACETAMINOPHEN\HYDROCODONE BITARTRATE
     Indication: FIBROMYALGIA
     Route: 065
     Dates: start: 20130116
  71. METHYLPREDNISOLONE ACETATE. [Concomitant]
     Active Substance: METHYLPREDNISOLONE ACETATE
     Route: 065
     Dates: start: 20141029
  72. METHYLPREDNISOLONE ACETATE. [Concomitant]
     Active Substance: METHYLPREDNISOLONE ACETATE
     Route: 065
     Dates: start: 20160505
  73. ENALAPRIL W/HYDROCHLOROTHIAZIDE [Concomitant]
     Active Substance: ENALAPRIL\HYDROCHLOROTHIAZIDE
     Indication: HYPERTENSION
     Route: 048
     Dates: start: 20151214
  74. NEURONTIN [Concomitant]
     Active Substance: GABAPENTIN
     Indication: RHEUMATOID ARTHRITIS
     Dosage: FOR 90 DAYS.
     Route: 048
     Dates: start: 20160428
  75. VITAMIN C [Concomitant]
     Active Substance: ASCORBIC ACID
     Route: 048
  76. VITAMIN D3 [Concomitant]
     Active Substance: CHOLECALCIFEROL
     Route: 048
  77. HYDROXYCHLOROQUINE SULFATE. [Concomitant]
     Active Substance: HYDROXYCHLOROQUINE SULFATE
     Indication: RHEUMATOID ARTHRITIS
     Dosage: FOR 90 DAYS.
     Route: 048
     Dates: start: 20140220
  78. METHOTREXATE. [Concomitant]
     Active Substance: METHOTREXATE
     Indication: RHEUMATOID ARTHRITIS
     Dosage: FOR 90 DAYS
     Route: 048
     Dates: start: 20151214
  79. RITUXAN [Concomitant]
     Active Substance: RITUXIMAB
     Dosage: 500MG/50ML SOLUTION
     Route: 042
     Dates: start: 20160518
  80. AZITHROMYCIN ANHYDROUS. [Concomitant]
     Active Substance: AZITHROMYCIN ANHYDROUS
     Indication: ACUTE SINUSITIS
     Route: 065
  81. ESTRADERM [Concomitant]
     Active Substance: ESTRADIOL
     Dosage: ON SUNDAY
     Route: 062
     Dates: end: 20120530
  82. NEURONTIN [Concomitant]
     Active Substance: GABAPENTIN
     Indication: FIBROMYALGIA
     Route: 048
     Dates: start: 20100816, end: 20101206

REACTIONS (4)
  - Fatigue [Recovering/Resolving]
  - Lupus-like syndrome [Recovered/Resolved]
  - Muscular weakness [Recovering/Resolving]
  - Rheumatoid arthritis [Unknown]

NARRATIVE: CASE EVENT DATE: 2016
